FAERS Safety Report 20584121 (Version 1)
Quarter: 2022Q1

REPORT INFORMATION
  Report Type: Spontaneous
  Country: US (occurrence: US)
  Receive Date: 20220311
  Receipt Date: 20220311
  Transmission Date: 20220423
  Serious: Yes (Life-Threatening, Hospitalization)
  Sender: FDA-Public Use
  Company Number: US-MYLANLABS-2022M1018630

PATIENT
  Age: 52 Year
  Sex: Male

DRUGS (1)
  1. DOCETAXEL [Suspect]
     Active Substance: DOCETAXEL
     Indication: Prostate cancer metastatic
     Dosage: 75 MILLIGRAM/SQ. METER
     Route: 065

REACTIONS (6)
  - Toxicity to various agents [Recovering/Resolving]
  - Febrile neutropenia [Recovering/Resolving]
  - Acute respiratory distress syndrome [Recovering/Resolving]
  - Respiratory failure [Recovering/Resolving]
  - Pneumonitis [Recovering/Resolving]
  - Dyspnoea [Recovering/Resolving]
